FAERS Safety Report 5607762-6 (Version None)
Quarter: 2008Q1

REPORT INFORMATION
  Report Type: 
  Country: None (occurrence: None)
  Receive Date: 20080130
  Receipt Date: 20080118
  Transmission Date: 20080703
  Serious: Yes (Hospitalization, Other)
  Sender: FDA-Public Use
  Company Number: US-ELI_LILLY_AND_COMPANY-US200709004907

PATIENT
  Age: 75 Year
  Sex: Female

DRUGS (3)
  1. FORTEO [Suspect]
     Indication: OSTEOPOROSIS
     Dosage: UNK, EACH EVENING
     Dates: start: 20061101, end: 20061225
  2. FORTEO [Suspect]
     Dosage: UNK, EACH EVENING
     Dates: start: 20061227
  3. DIURETICS [Concomitant]

REACTIONS (7)
  - BLOOD POTASSIUM DECREASED [None]
  - CONTUSION [None]
  - EXCORIATION [None]
  - FALL [None]
  - HAEMORRHAGE [None]
  - MYOCARDIAL INFARCTION [None]
  - SKIN LACERATION [None]
